FAERS Safety Report 23711384 (Version 1)
Quarter: 2024Q2

REPORT INFORMATION
  Report Type: Other
  Country: US (occurrence: US)
  Receive Date: 20240405
  Receipt Date: 20240405
  Transmission Date: 20240715
  Serious: No
  Sender: FDA-Public Use
  Company Number: US-TRAVERE-2024TVT00296

PATIENT
  Sex: Male
  Weight: 12.25 kg

DRUGS (1)
  1. CHOLBAM [Suspect]
     Active Substance: CHOLIC ACID
     Indication: Product used for unknown indication
     Route: 048

REACTIONS (4)
  - Diarrhoea [Unknown]
  - Weight decreased [Unknown]
  - Vomiting [Unknown]
  - Product dose omission issue [Unknown]
